FAERS Safety Report 8015946-5 (Version None)
Quarter: 2011Q4

REPORT INFORMATION
  Report Type: 
  Country: None (occurrence: None)
  Receive Date: 20111230
  Receipt Date: 20111228
  Transmission Date: 20120403
  Serious: Yes (Other)
  Sender: FDA-Public Use
  Company Number: FR-ROCHE-1015842

PATIENT
  Sex: Female

DRUGS (5)
  1. AVASTIN [Suspect]
     Indication: COLON CANCER
     Route: 042
     Dates: start: 20110817
  2. LEVOLEUCOVORIN CALCIUM [Suspect]
     Indication: COLON CANCER
     Route: 042
     Dates: start: 20110817
  3. FLUOROURACIL [Suspect]
     Dosage: DECREASED DOSE OF 30 % IN BOLUS ADN 25 % IN INFUSIONS
     Dates: start: 20111206
  4. FLUOROURACIL [Suspect]
     Indication: COLON CANCER
     Route: 042
     Dates: start: 20110817
  5. FLUOROURACIL [Suspect]
     Dosage: REDUCED DOSES
     Dates: start: 20111220

REACTIONS (4)
  - PALMAR-PLANTAR ERYTHRODYSAESTHESIA SYNDROME [None]
  - SKIN EXFOLIATION [None]
  - DIARRHOEA [None]
  - NAUSEA [None]
